FAERS Safety Report 12809952 (Version 1)
Quarter: 2016Q4

REPORT INFORMATION
  Report Type: Other
  Country: FR (occurrence: FR)
  Receive Date: 20161005
  Receipt Date: 20161005
  Transmission Date: 20170207
  Serious: Yes (Hospitalization, Other)
  Sender: FDA-Public Use
  Company Number: FR-APOTEX-2016AP012757

PATIENT
  Age: 86 Year
  Sex: Female

DRUGS (8)
  1. CARDENSIEL [Concomitant]
     Active Substance: BISOPROLOL FUMARATE
     Dosage: 1.25 MG, 1D
  2. NATISPRAY [Concomitant]
     Active Substance: NITROGLYCERIN
     Dosage: 0.15 MG, PRN
  3. PAXIL [Suspect]
     Active Substance: PAROXETINE HYDROCHLORIDE
     Indication: DEPRESSION
     Dosage: 20 MG, 1D
     Route: 048
  4. ATORVASTATIN [Concomitant]
     Active Substance: ATORVASTATIN
     Dosage: 20 MG, 1D
     Route: 065
  5. KARDEGIC [Interacting]
     Active Substance: ASPIRIN LYSINE
     Indication: ACUTE CORONARY SYNDROME
     Dosage: 75 MG, 1D
     Route: 048
     Dates: end: 20160625
  6. INEXIUM [Concomitant]
     Active Substance: ESOMEPRAZOLE
     Dosage: 20 MG, 1D
  7. PARACETAMOL [Concomitant]
     Active Substance: ACETAMINOPHEN
     Dosage: 1000 MG, TID
  8. LACTULOSE. [Concomitant]
     Active Substance: LACTULOSE
     Dosage: 1 DF, 1D

REACTIONS (2)
  - Meningorrhagia [Recovered/Resolved]
  - Drug interaction [Unknown]

NARRATIVE: CASE EVENT DATE: 20160624
